FAERS Safety Report 8295812-0 (Version None)
Quarter: 2012Q2

REPORT INFORMATION
  Report Type: 
  Country: None (occurrence: None)
  Receive Date: 20120418
  Receipt Date: 20120404
  Transmission Date: 20120825
  Serious: Yes (Death)
  Sender: FDA-Public Use
  Company Number: IT-CELGENEUS-083-21880-12011019

PATIENT
  Sex: Female

DRUGS (3)
  1. REVLIMID [Suspect]
     Indication: MYELOMA RECURRENCE
     Dosage: 10 MILLIGRAM
     Route: 048
     Dates: start: 20100824
  2. WHOLE BLOOD [Concomitant]
     Route: 041
  3. REVLIMID [Suspect]
     Dosage: REDUCED DOSAGE.
     Route: 048
     Dates: end: 20110127

REACTIONS (1)
  - MULTIPLE MYELOMA [None]
